FAERS Safety Report 10935679 (Version 1)
Quarter: 2015Q1

REPORT INFORMATION
  Report Type: Spontaneous
  Country: US (occurrence: US)
  Receive Date: 20150320
  Receipt Date: 20150320
  Transmission Date: 20150721
  Serious: No
  Sender: FDA-Public Use
  Company Number: US-PFIZER INC-2015098274

PATIENT
  Age: 47 Year
  Sex: Female
  Weight: 118 kg

DRUGS (3)
  1. METFORMIN [Concomitant]
     Active Substance: METFORMIN HYDROCHLORIDE
     Indication: GLUCOSE TOLERANCE IMPAIRED
     Dosage: 1000 MG (TWO 500 MG TABLET), 1X/DAY
  2. NICOTROL [Suspect]
     Active Substance: NICOTINE
     Indication: SMOKING CESSATION THERAPY
     Dosage: 3 CARTRIDGES
     Dates: start: 20150315, end: 20150316
  3. NICOTROL [Suspect]
     Active Substance: NICOTINE
     Dosage: 2 CARTRIDGES
     Dates: start: 20150317

REACTIONS (7)
  - Diarrhoea [Recovered/Resolved]
  - Hyperhidrosis [Unknown]
  - Nightmare [Unknown]
  - Irritability [Unknown]
  - Disturbance in attention [Unknown]
  - Headache [Unknown]
  - Middle insomnia [Unknown]

NARRATIVE: CASE EVENT DATE: 201503
